FAERS Safety Report 24805815 (Version 2)
Quarter: 2025Q1

REPORT INFORMATION
  Report Type: Spontaneous
  Country: FR (occurrence: FR)
  Receive Date: 20250103
  Receipt Date: 20250109
  Transmission Date: 20250409
  Serious: Yes (Hospitalization, Other)
  Sender: PFIZER
  Company Number: None

PATIENT
  Age: 76 Year
  Sex: Female
  Weight: 66.6 kg

DRUGS (18)
  1. ELIQUIS [Interacting]
     Active Substance: APIXABAN
     Indication: Graft thrombosis
     Dosage: 1 DF, 2X/DAY
     Route: 048
     Dates: start: 20241113, end: 20241123
  2. PAXLOVID [Interacting]
     Active Substance: NIRMATRELVIR\RITONAVIR
     Indication: COVID-19
     Dosage: [NIRMATRELVIR 150 MG]/[RITONAVIR 100 MG]; 2X/DAY
     Route: 048
     Dates: start: 20241118, end: 20241123
  3. CELLCEPT [Concomitant]
     Active Substance: MYCOPHENOLATE MOFETIL
     Indication: Prophylaxis against transplant rejection
     Dosage: 2 DF, 2X/DAY
     Route: 048
     Dates: start: 20241108
  4. PREDNISONE [Concomitant]
     Active Substance: PREDNISONE
     Indication: Prophylaxis against transplant rejection
     Route: 048
     Dates: start: 20241108
  5. NULOJIX [Concomitant]
     Active Substance: BELATACEPT
     Indication: Prophylaxis against transplant rejection
     Route: 042
     Dates: start: 20241108, end: 20241108
  6. NULOJIX [Concomitant]
     Active Substance: BELATACEPT
     Route: 042
     Dates: start: 20241111, end: 20241111
  7. NULOJIX [Concomitant]
     Active Substance: BELATACEPT
     Route: 042
     Dates: start: 20241121, end: 20241121
  8. NULOJIX [Concomitant]
     Active Substance: BELATACEPT
     Route: 042
     Dates: start: 20241128, end: 20241128
  9. BACTRIM [Concomitant]
     Active Substance: SULFAMETHOXAZOLE\TRIMETHOPRIM
     Indication: Opportunistic infection prophylaxis
     Dosage: 3 DF, WEEKLY
     Route: 048
     Dates: start: 20241108
  10. VILDAGLIPTINE EG [Concomitant]
     Indication: Type 2 diabetes mellitus
     Dosage: 1 DF, 1X/DAY
     Route: 048
     Dates: start: 2023
  11. REPAGLINIDE [Concomitant]
     Active Substance: REPAGLINIDE
     Indication: Type 2 diabetes mellitus
     Dosage: 1 DF, 2X/DAY
     Route: 048
     Dates: start: 2023
  12. AMLODIPINE [Concomitant]
     Active Substance: AMLODIPINE BESYLATE
     Indication: Hypertension
     Dosage: 1 DF, 1X/DAY
     Route: 048
     Dates: start: 2024
  13. EPLERENONE [Concomitant]
     Active Substance: EPLERENONE
     Indication: Hypertension
     Dosage: 1 DF, 1X/DAY
     Route: 048
     Dates: start: 20241116
  14. PERINDOPRIL [Concomitant]
     Active Substance: PERINDOPRIL
     Indication: Hypertension
     Dosage: 1 DF, 1X/DAY
     Route: 048
     Dates: start: 2024
  15. FUROSEMIDE [Concomitant]
     Active Substance: FUROSEMIDE
     Indication: Hypertension
     Dosage: 1 DF, 1X/DAY
     Route: 048
     Dates: start: 2020, end: 20241123
  16. URAPIDIL [Concomitant]
     Active Substance: URAPIDIL
     Indication: Hypertension
     Dosage: 2 DF, 2X/DAY, EXTENDED-RELEASE TABLET
     Route: 048
     Dates: start: 2020
  17. PANTOPRAZOLE SODIUM [Concomitant]
     Active Substance: PANTOPRAZOLE SODIUM
     Indication: Gastrooesophageal reflux prophylaxis
     Dosage: 1 DF, 1X/DAY
     Route: 048
  18. LEVOTHYROXINE [Concomitant]
     Active Substance: LEVOTHYROXINE
     Indication: Hypothyroidism
     Dosage: 1 DF, 1X/DAY
     Route: 048
     Dates: start: 2020

REACTIONS (4)
  - Labelled drug-drug interaction issue [Recovered/Resolved]
  - Product prescribing issue [Recovered/Resolved]
  - Graft haemorrhage [Recovered/Resolved]
  - Off label use [Unknown]

NARRATIVE: CASE EVENT DATE: 20241113
